FAERS Safety Report 22245329 (Version 3)
Quarter: 2023Q2

REPORT INFORMATION
  Report Type: Spontaneous
  Country: JP (occurrence: JP)
  Receive Date: 20230424
  Receipt Date: 20230628
  Transmission Date: 20230721
  Serious: Yes (Hospitalization)
  Sender: FDA-Public Use
  Company Number: JP-NBI-BJ202306930

PATIENT
  Age: 57 Year
  Sex: Female

DRUGS (1)
  1. OFEV [Suspect]
     Active Substance: NINTEDANIB
     Indication: Interstitial lung disease
     Route: 048
     Dates: start: 20221101

REACTIONS (9)
  - Glossopharyngeal neuralgia [Recovering/Resolving]
  - Diarrhoea [Recovering/Resolving]
  - Abdominal distension [Not Recovered/Not Resolved]
  - Cough [Recovering/Resolving]
  - Sputum increased [Recovering/Resolving]
  - Dyspnoea [Not Recovered/Not Resolved]
  - Nasopharyngitis [Unknown]
  - Back pain [Not Recovered/Not Resolved]
  - Musculoskeletal pain [Not Recovered/Not Resolved]
